FAERS Safety Report 13530893 (Version 1)
Quarter: 2017Q2

REPORT INFORMATION
  Report Type: Spontaneous
  Country: US (occurrence: US)
  Receive Date: 20170509
  Receipt Date: 20170509
  Transmission Date: 20170830
  Serious: Yes (Hospitalization)
  Sender: FDA-Public Use
  Company Number: None

PATIENT
  Age: 66 Year
  Sex: Male

DRUGS (9)
  1. ATIVAN [Concomitant]
     Active Substance: LORAZEPAM
  2. CALCITRIOL. [Concomitant]
     Active Substance: CALCITRIOL
  3. PREDN [Concomitant]
  4. CLEEBREX [Concomitant]
  5. AFINITOR [Suspect]
     Active Substance: EVEROLIMUS
     Indication: HEPATIC CANCER
     Route: 048
     Dates: start: 20110824
  6. OCTREOTIDE. [Concomitant]
     Active Substance: OCTREOTIDE
  7. AMLODIPINE [Concomitant]
     Active Substance: AMLODIPINE BESYLATE
  8. B COMPL [Concomitant]
  9. OXYCODONE [Concomitant]
     Active Substance: OXYCODONE

REACTIONS (1)
  - Diabetic foot infection [None]

NARRATIVE: CASE EVENT DATE: 20170501
